FAERS Safety Report 13734571 (Version 1)
Quarter: 2017Q3

REPORT INFORMATION
  Report Type: Report from Study
  Country: NL (occurrence: NL)
  Receive Date: 20170709
  Receipt Date: 20170709
  Transmission Date: 20171127
  Serious: Yes (Other)
  Sender: FDA-Public Use
  Company Number: PHHY2017NL099995

PATIENT
  Sex: Female

DRUGS (1)
  1. ZOMETA [Suspect]
     Active Substance: ZOLEDRONIC ACID
     Indication: BREAST CANCER
     Dosage: 4 MG/200 ML EVERY 12 WEEK
     Route: 042
     Dates: start: 20170316

REACTIONS (2)
  - Terminal state [Unknown]
  - Inappropriate schedule of drug administration [Unknown]
